FAERS Safety Report 5253735-5 (Version None)
Quarter: 2007Q1

REPORT INFORMATION
  Report Type: 
  Country: None (occurrence: None)
  Receive Date: 20070227
  Receipt Date: 20070216
  Transmission Date: 20070707
  Serious: Yes (Hospitalization)
  Sender: FDA-Public Use
  Company Number: 2007307860

PATIENT
  Age: 71 Year
  Sex: Female
  Weight: 68.0396 kg

DRUGS (3)
  1. SUDAFED S.A. [Suspect]
     Indication: SINUSITIS
     Dosage: 2 TABLETS EVERY 4 HOURS THROUGH THE DAY (6 IN 1 D), ORAL
     Route: 048
     Dates: start: 20070125, end: 20070202
  2. SUDAFED SINUS NIGHTTIME (PESUDOEPHEDRINE, TRIPROLIDINE [Suspect]
     Indication: SINUSITIS
     Dosage: 2 TABLETS AT NIGHTIME (1 IN 1 D), ORAL
     Route: 048
     Dates: start: 20070125, end: 20070202
  3. PREDNISONE TAB [Concomitant]

REACTIONS (3)
  - DIZZINESS [None]
  - DRUG INTOLERANCE [None]
  - TACHYCARDIA [None]
